FAERS Safety Report 9541410 (Version 1)
Quarter: 2013Q3

REPORT INFORMATION
  Report Type: Spontaneous
  Country: US (occurrence: None)
  Receive Date: 20130919
  Receipt Date: 20130919
  Transmission Date: 20140515
  Serious: Yes (Other)
  Sender: FDA-Public Use
  Company Number: None

PATIENT
  Age: 39 Year
  Sex: Male
  Weight: 108.86 kg

DRUGS (2)
  1. HYDROCODONE/APAP [Suspect]
     Indication: ACCIDENT AT WORK
     Dates: start: 20130402
  2. LYRICA [Suspect]
     Dosage: 150 MG QTY 60
     Dates: start: 20130301

REACTIONS (10)
  - Rash [None]
  - Dry mouth [None]
  - Somnolence [None]
  - Urticaria [None]
  - Dyspnoea [None]
  - Skin ulcer [None]
  - Disturbance in attention [None]
  - Local swelling [None]
  - Local swelling [None]
  - Oedema mouth [None]
